FAERS Safety Report 6036006-9 (Version None)
Quarter: 2009Q1

REPORT INFORMATION
  Report Type: 
  Country: None (occurrence: None)
  Receive Date: 20090113
  Receipt Date: 20090106
  Transmission Date: 20090719
  Serious: Yes (Hospitalization, Other)
  Sender: FDA-Public Use
  Company Number: US-ABBOTT-09P-163-0496395-00

PATIENT
  Sex: Male
  Weight: 79.904 kg

DRUGS (14)
  1. ZEMPLAR [Suspect]
     Indication: HYPERPARATHYROIDISM
     Dates: start: 20080101, end: 20090101
  2. ZEMPLAR [Suspect]
  3. PHOSLO [Concomitant]
     Indication: DRUG USE FOR UNKNOWN INDICATION
     Dates: start: 20080601
  4. COUMADIN [Concomitant]
     Indication: ATRIAL FIBRILLATION
  5. CLONIDINE [Concomitant]
     Indication: DRUG USE FOR UNKNOWN INDICATION
  6. LANOXIN [Concomitant]
     Indication: DRUG USE FOR UNKNOWN INDICATION
  7. FLOMAX [Concomitant]
     Indication: DRUG USE FOR UNKNOWN INDICATION
  8. HYDRALAZINE HCL [Concomitant]
     Indication: DRUG USE FOR UNKNOWN INDICATION
  9. LIPITOR [Concomitant]
     Indication: DRUG USE FOR UNKNOWN INDICATION
  10. NORVASC [Concomitant]
     Indication: DRUG USE FOR UNKNOWN INDICATION
  11. POTASSIUM CHLORIDE [Concomitant]
     Indication: DRUG USE FOR UNKNOWN INDICATION
  12. PROSCAR [Concomitant]
     Indication: DRUG USE FOR UNKNOWN INDICATION
  13. LASIX [Concomitant]
     Indication: DRUG USE FOR UNKNOWN INDICATION
  14. EPOGEN [Concomitant]
     Indication: ANAEMIA

REACTIONS (4)
  - BRADYCARDIA [None]
  - CARDIAC FAILURE CONGESTIVE [None]
  - DYSPNOEA [None]
  - RENAL FAILURE CHRONIC [None]
